FAERS Safety Report 4586572-5 (Version None)
Quarter: 2005Q1

REPORT INFORMATION
  Report Type: 
  Country: None (occurrence: None)
  Receive Date: 20050218
  Receipt Date: 20040420
  Transmission Date: 20050727
  Serious: Yes (Other)
  Sender: FDA-Public Use
  Company Number: US-BRISTOL-MYERS SQUIBB COMPANY-12565529

PATIENT
  Age: 56 Year
  Sex: Female
  Weight: 68 kg

DRUGS (7)
  1. TAXOL [Suspect]
     Indication: BREAST CANCER
     Dosage: OVER 1.5 HOURS
     Route: 042
     Dates: start: 20040331, end: 20040331
  2. ATIVAN [Concomitant]
     Indication: PREMEDICATION
  3. NEXIUM [Concomitant]
  4. ANZEMET [Concomitant]
     Indication: PREMEDICATION
  5. DECADRON [Concomitant]
     Indication: PREMEDICATION
  6. BENADRYL [Concomitant]
     Indication: PREMEDICATION
  7. TAGAMET [Concomitant]
     Indication: PREMEDICATION

REACTIONS (1)
  - NEUROPATHY PERIPHERAL [None]
